FAERS Safety Report 4550825-7 (Version None)
Quarter: 2005Q1

REPORT INFORMATION
  Report Type: 
  Country: None (occurrence: None)
  Receive Date: 20050112
  Receipt Date: 20041027
  Transmission Date: 20050727
  Serious: Yes (Other)
  Sender: FDA-Public Use
  Company Number: TR-MERCK-0410USA04320M

PATIENT
  Age: 19 Year
  Sex: Female

DRUGS (6)
  1. COSMEGEN [Suspect]
     Indication: NEPHROBLASTOMA
     Route: 042
  2. VINCRISTINE SULFATE [Suspect]
     Indication: NEPHROBLASTOMA
     Route: 065
  3. CYCLOPHOSPHAMIDE [Suspect]
     Route: 042
  4. IFOSFAMIDE [Suspect]
     Route: 065
  5. CARBOPLATIN [Suspect]
     Route: 065
  6. ETOPOSIDE [Suspect]
     Route: 065

REACTIONS (6)
  - CAESAREAN SECTION [None]
  - DEPRESSION [None]
  - DRUG EXPOSURE DURING PREGNANCY [None]
  - FEBRILE NEUTROPENIA [None]
  - HAEMATOTOXICITY [None]
  - REFUSAL OF TREATMENT BY PATIENT [None]
